FAERS Safety Report 22336863 (Version 1)
Quarter: 2023Q2

REPORT INFORMATION
  Report Type: Spontaneous
  Country: US (occurrence: None)
  Receive Date: 20230517
  Receipt Date: 20230517
  Transmission Date: 20230721
  Serious: No
  Sender: FDA-Public Use
  Company Number: None

PATIENT
  Age: 75 Year
  Sex: Female
  Weight: 85.5 kg

DRUGS (4)
  1. MYRBETRIQ [Suspect]
     Active Substance: MIRABEGRON
     Indication: Hypertonic bladder
     Dosage: OTHER QUANTITY : 1 TABLET(S);?FREQUENCY : DAILY;?
     Route: 048
     Dates: start: 20230506, end: 20230517
  2. losortan [Concomitant]
  3. levothryoxin [Concomitant]
  4. MONTELUKAST SODIUM [Concomitant]
     Active Substance: MONTELUKAST SODIUM

REACTIONS (5)
  - Headache [None]
  - Respiration abnormal [None]
  - Wheezing [None]
  - Breath sounds abnormal [None]
  - Pelvic pain [None]

NARRATIVE: CASE EVENT DATE: 20230516
